FAERS Safety Report 12610282 (Version 1)
Quarter: 2016Q3

REPORT INFORMATION
  Report Type: Spontaneous
  Country: BR (occurrence: BR)
  Receive Date: 20160801
  Receipt Date: 20160801
  Transmission Date: 20161109
  Serious: Yes (Other)
  Sender: FDA-Public Use
  Company Number: BR-PFIZER INC-2016364219

PATIENT
  Age: 85 Year
  Sex: Female
  Weight: 48 kg

DRUGS (3)
  1. XALATAN [Suspect]
     Active Substance: LATANOPROST
     Indication: GLAUCOMA
     Dosage: 3 UG (ONE DROP IN EACH EYE), UNK
     Route: 047
     Dates: start: 2011
  2. AZOPT [Concomitant]
     Active Substance: BRINZOLAMIDE
     Indication: GLAUCOMA
     Dosage: 3 UG (ONE DROP IN EACH EYE), 2X/DAY (IN THE MORNING AND AT NIGHT)
     Route: 047
     Dates: start: 2011
  3. LACRIFILM [Concomitant]
     Active Substance: CARBOXYMETHYLCELLULOSE SODIUM
     Indication: GLAUCOMA
     Dosage: UNK, 4X/DAY
     Route: 047
     Dates: start: 2014

REACTIONS (4)
  - Weight decreased [Unknown]
  - Nervousness [Not Recovered/Not Resolved]
  - Disturbance in attention [Unknown]
  - Visual acuity reduced [Not Recovered/Not Resolved]
